FAERS Safety Report 6288361-2 (Version None)
Quarter: 2009Q3

REPORT INFORMATION
  Report Type: 
  Country: None (occurrence: None)
  Receive Date: 20090729
  Receipt Date: 20090722
  Transmission Date: 20100115
  Serious: Yes (Hospitalization)
  Sender: FDA-Public Use
  Company Number: US-B.I. PHARMACEUTICALS,INC./RIDGEFIELD-2009-BP-08665BP

PATIENT
  Sex: Female
  Weight: 72.6 kg

DRUGS (3)
  1. MIRAPEX [Suspect]
     Indication: RESTLESS LEGS SYNDROME
     Dosage: 0.25 MG
     Route: 048
     Dates: start: 20090529
  2. IBUPROFEN [Concomitant]
     Indication: HEADACHE
     Route: 048
     Dates: start: 19990101, end: 20090514
  3. CLARITIN [Concomitant]
     Route: 048
     Dates: start: 20090320

REACTIONS (2)
  - CHEST PAIN [None]
  - HYPERTENSION [None]
